FAERS Safety Report 7421140-9 (Version None)
Quarter: 2011Q2

REPORT INFORMATION
  Report Type: 
  Country: None (occurrence: None)
  Receive Date: 20110407
  Receipt Date: 20110301
  Transmission Date: 20111010
  Serious: Yes (Other)
  Sender: FDA-Public Use
  Company Number: PT11-041-AE

PATIENT
  Age: 63 Year
  Sex: Female
  Weight: 81.6475 kg

DRUGS (3)
  1. LISINOPRIL [Concomitant]
  2. ATENOLOL [Concomitant]
  3. FLECAINIDE ACETATE [Suspect]
     Indication: HEART RATE IRREGULAR
     Dosage: 1 TABLET, BID, ORAL
     Route: 048
     Dates: start: 20101226, end: 20110101

REACTIONS (7)
  - PRODUCT SUBSTITUTION ISSUE [None]
  - MYOCARDIAL INFARCTION [None]
  - HYPERHIDROSIS [None]
  - CHEST PAIN [None]
  - MALAISE [None]
  - HEART RATE INCREASED [None]
  - HEART RATE IRREGULAR [None]
